FAERS Safety Report 9435997 (Version 1)
Quarter: 2013Q3

REPORT INFORMATION
  Report Type: Report from Study
  Country: US (occurrence: US)
  Receive Date: 20130801
  Receipt Date: 20130801
  Transmission Date: 20140515
  Serious: Yes (Hospitalization)
  Sender: FDA-Public Use
  Company Number: US-ABBOTT-13P-163-1124760-00

PATIENT
  Age: 27 Year
  Sex: Female
  Weight: 62.65 kg

DRUGS (5)
  1. HUMIRA [Suspect]
     Indication: CROHN^S DISEASE
     Dosage: ONCE
     Dates: start: 201209, end: 201209
  2. HUMIRA [Suspect]
     Indication: INTESTINAL FIBROSIS
     Dosage: ONCE
  3. HUMIRA [Suspect]
     Indication: INTESTINAL STENOSIS
     Dates: end: 201304
  4. PRENATAL VITAMINS [Concomitant]
     Indication: PRODUCT USED FOR UNKNOWN INDICATION
  5. PROBIOTICS NOS [Concomitant]
     Indication: PRODUCT USED FOR UNKNOWN INDICATION

REACTIONS (4)
  - Hypophagia [Recovered/Resolved]
  - Abdominal distension [Recovered/Resolved]
  - Localised intraabdominal fluid collection [Recovered/Resolved]
  - Abscess [Recovered/Resolved]
